FAERS Safety Report 19084458 (Version 1)
Quarter: 2021Q2

REPORT INFORMATION
  Report Type: Spontaneous
  Country: US (occurrence: US)
  Receive Date: 20210401
  Receipt Date: 20210401
  Transmission Date: 20210717
  Serious: No
  Sender: FDA-Public Use
  Company Number: US-MYLANLABS-2021M1018010

PATIENT
  Sex: Female

DRUGS (1)
  1. ESTRADIOL TRANSDERMAL SYSTEM [Suspect]
     Active Substance: ESTRADIOL
     Indication: HORMONE REPLACEMENT THERAPY
     Dosage: 0.037 MILLIGRAM, BIWEEKLY
     Route: 062
     Dates: start: 20210221

REACTIONS (4)
  - Product quality issue [Recovered/Resolved]
  - Hot flush [Recovered/Resolved]
  - Product adhesion issue [Recovering/Resolving]
  - Night sweats [Recovered/Resolved]
